FAERS Safety Report 8519631-2 (Version None)
Quarter: 2012Q3

REPORT INFORMATION
  Report Type: 
  Country: None (occurrence: None)
  Receive Date: 20120718
  Receipt Date: 20120711
  Transmission Date: 20120928
  Serious: No
  Sender: FDA-Public Use
  Company Number: US-009507513-1207USA002951

PATIENT

DRUGS (3)
  1. SAPHRIS [Suspect]
     Indication: BIPOLAR DISORDER
     Dosage: 5 MG, UNK
     Route: 060
  2. SEROQUEL [Concomitant]
  3. FLEXERIL [Concomitant]

REACTIONS (7)
  - PAIN [None]
  - MUSCLE SPASMS [None]
  - DEPRESSED LEVEL OF CONSCIOUSNESS [None]
  - URINARY INCONTINENCE [None]
  - DYSPHAGIA [None]
  - FEELING HOT [None]
  - FORMICATION [None]
